FAERS Safety Report 8380592-0 (Version None)
Quarter: 2012Q2

REPORT INFORMATION
  Report Type: 
  Country: None (occurrence: None)
  Receive Date: 20120523
  Receipt Date: 20120430
  Transmission Date: 20120825
  Serious: Yes (Other)
  Sender: FDA-Public Use
  Company Number: DE-UCBSA-057558

PATIENT
  Sex: Female

DRUGS (3)
  1. TOPIRAMATE [Concomitant]
     Dosage: DAILY DOSE: 50 MG
  2. TOPIRAMATE [Concomitant]
     Dosage: DAILY DOSE: 150 MG
  3. KEPPRA [Suspect]
     Dosage: 500 MG-0-500 MG

REACTIONS (6)
  - AGGRESSION [None]
  - WEIGHT DECREASED [None]
  - SUICIDAL IDEATION [None]
  - ABNORMAL BEHAVIOUR [None]
  - AURA [None]
  - PHYSICAL ASSAULT [None]
